FAERS Safety Report 6766736-2 (Version None)
Quarter: 2010Q2

REPORT INFORMATION
  Report Type: 
  Country: None (occurrence: None)
  Receive Date: 20100611
  Receipt Date: 20100603
  Transmission Date: 20101027
  Serious: Yes (Other)
  Sender: FDA-Public Use
  Company Number: US-ELI_LILLY_AND_COMPANY-US201006001355

PATIENT
  Sex: Female
  Weight: 74.83 kg

DRUGS (6)
  1. BYETTA [Suspect]
     Indication: TYPE 2 DIABETES MELLITUS
     Dosage: 5 UG, 2/D
     Route: 058
  2. BYETTA [Suspect]
     Dosage: 10 UG, 2/D
     Route: 058
     Dates: end: 20080101
  3. NORVASC [Concomitant]
     Indication: BLOOD PRESSURE
     Dosage: 10 MG, 2/D
     Dates: start: 20000101
  4. AMARYL [Concomitant]
     Indication: TYPE 2 DIABETES MELLITUS
     Dosage: 1 MG, 2/D
  5. PRINIVIL [Concomitant]
     Dosage: 40 MG, DAILY (1/D)
  6. GLUCOPHAGE [Concomitant]
     Indication: TYPE 2 DIABETES MELLITUS
     Dosage: 500 MG, 2/D

REACTIONS (5)
  - COLON CANCER [None]
  - CONSTIPATION [None]
  - MUSCULOSKELETAL DISORDER [None]
  - NAUSEA [None]
  - TEMPERATURE INTOLERANCE [None]
